FAERS Safety Report 17819962 (Version 1)
Quarter: 2020Q2

REPORT INFORMATION
  Report Type: Spontaneous
  Country: US (occurrence: US)
  Receive Date: 20200525
  Receipt Date: 20200525
  Transmission Date: 20200714
  Serious: No
  Sender: FDA-Public Use
  Company Number: US-INCYTE CORPORATION-2020IN004357

PATIENT

DRUGS (2)
  1. JAKAFI [Suspect]
     Active Substance: RUXOLITINIB
     Indication: IMMUNE SYSTEM DISORDER
  2. JAKAFI [Suspect]
     Active Substance: RUXOLITINIB
     Indication: RED BLOOD CELL COUNT ABNORMAL
     Dosage: 5MG IN THE MORNING AND 10MG AT NIGHT
     Route: 048
     Dates: end: 202005

REACTIONS (2)
  - Off label use [Unknown]
  - Blood count abnormal [Not Recovered/Not Resolved]

NARRATIVE: CASE EVENT DATE: 202005
